FAERS Safety Report 8732696 (Version 3)
Quarter: 2012Q4

REPORT INFORMATION
  Report Type: 
  Country: US (occurrence: US)
  Receive Date: 20120820
  Receipt Date: 20121016
  Transmission Date: 20130627
  Serious: No
  Sender: FDA-Public Use
  Company Number: US-ASTRAZENECA-2011SE56638

PATIENT
  Age: 48 Year
  Sex: Female
  Weight: 59 kg

DRUGS (30)
  1. SEROQUEL [Suspect]
     Indication: BIPOLAR II DISORDER
     Route: 048
     Dates: start: 1996
  2. SEROQUEL [Suspect]
     Indication: ANXIETY
     Route: 048
     Dates: start: 1996
  3. SEROQUEL [Suspect]
     Indication: AFFECTIVE DISORDER
     Route: 048
     Dates: start: 1996
  4. SEROQUEL [Suspect]
     Indication: DEPRESSION
     Route: 048
     Dates: start: 1996
  5. SEROQUEL [Suspect]
     Indication: BIPOLAR II DISORDER
     Route: 048
     Dates: start: 2008
  6. SEROQUEL [Suspect]
     Indication: ANXIETY
     Route: 048
     Dates: start: 2008
  7. SEROQUEL [Suspect]
     Indication: AFFECTIVE DISORDER
     Route: 048
     Dates: start: 2008
  8. SEROQUEL [Suspect]
     Indication: DEPRESSION
     Route: 048
     Dates: start: 2008
  9. SEROQUEL [Suspect]
     Indication: BIPOLAR II DISORDER
     Route: 048
  10. SEROQUEL [Suspect]
     Indication: ANXIETY
     Route: 048
  11. SEROQUEL [Suspect]
     Indication: AFFECTIVE DISORDER
     Route: 048
  12. SEROQUEL [Suspect]
     Indication: DEPRESSION
     Route: 048
  13. SEROQUEL [Suspect]
     Indication: BIPOLAR II DISORDER
     Route: 048
  14. SEROQUEL [Suspect]
     Indication: ANXIETY
     Route: 048
  15. SEROQUEL [Suspect]
     Indication: AFFECTIVE DISORDER
     Route: 048
  16. SEROQUEL [Suspect]
     Indication: DEPRESSION
     Route: 048
  17. SEROQUEL [Suspect]
     Indication: BIPOLAR II DISORDER
     Route: 048
  18. SEROQUEL [Suspect]
     Indication: ANXIETY
     Route: 048
  19. SEROQUEL [Suspect]
     Indication: AFFECTIVE DISORDER
     Route: 048
  20. SEROQUEL [Suspect]
     Indication: DEPRESSION
     Route: 048
  21. SEROQUEL [Suspect]
     Indication: BIPOLAR II DISORDER
     Route: 048
     Dates: start: 2009
  22. SEROQUEL [Suspect]
     Indication: ANXIETY
     Route: 048
     Dates: start: 2009
  23. SEROQUEL [Suspect]
     Indication: AFFECTIVE DISORDER
     Route: 048
     Dates: start: 2009
  24. SEROQUEL [Suspect]
     Indication: DEPRESSION
     Route: 048
     Dates: start: 2009
  25. SEROQUEL [Suspect]
     Indication: BIPOLAR II DISORDER
     Route: 048
  26. SEROQUEL [Suspect]
     Indication: ANXIETY
     Route: 048
  27. SEROQUEL [Suspect]
     Indication: AFFECTIVE DISORDER
     Route: 048
  28. SEROQUEL [Suspect]
     Indication: DEPRESSION
     Route: 048
  29. KLONOPIN [Concomitant]
  30. BENADRYL [Concomitant]
     Indication: MULTIPLE ALLERGIES

REACTIONS (15)
  - Bipolar disorder [Unknown]
  - Pneumonia [Unknown]
  - Panic attack [Unknown]
  - Hyperhidrosis [Unknown]
  - Paraesthesia [Unknown]
  - Enuresis [Unknown]
  - Osteoarthritis [Unknown]
  - Neuropathy peripheral [Unknown]
  - Agitation [Unknown]
  - Impaired work ability [Unknown]
  - Abnormal dreams [Unknown]
  - Heart rate increased [Unknown]
  - Somnolence [Unknown]
  - Somnolence [Unknown]
  - Drug ineffective [Unknown]
